FAERS Safety Report 8263275-7 (Version None)
Quarter: 2012Q2

REPORT INFORMATION
  Report Type: 
  Country: None (occurrence: None)
  Receive Date: 20120405
  Receipt Date: 20120402
  Transmission Date: 20120825
  Serious: Yes (Other)
  Sender: FDA-Public Use
  Company Number: BR-PFIZER INC-2012060629

PATIENT
  Age: 65 Year
  Sex: Male
  Weight: 110 kg

DRUGS (12)
  1. ALPRAZOLAM [Suspect]
     Indication: PANIC DISORDER
     Dosage: 0.5 MG, 1X/DAY
     Route: 048
     Dates: start: 20120101
  2. ENALAPRIL MALEATE [Concomitant]
     Indication: HYPERTENSION
     Dosage: 20 MG (TWO TABLETS OF 10MG), 1X/DAY, AT NIGHT
     Dates: start: 20090101
  3. LASIX [Concomitant]
     Indication: HYPERTENSION
     Dosage: 40 MG, 1X/DAY
     Dates: start: 20110101
  4. CLONAZEPAM [Concomitant]
     Indication: DEPRESSION
     Dosage: 2 MG, 1X/DAY
  5. LEVOTHYROXINE SODIUM [Concomitant]
     Indication: HYPOTHYROIDISM
     Dosage: 150 MG, 1X/DAY, AT NIGHT
  6. OMEPRAZOLE [Concomitant]
     Indication: PROPHYLAXIS AGAINST GASTROINTESTINAL ULCER
     Dosage: UNK, IN THE MORNING
  7. CLONAZEPAM [Concomitant]
     Indication: PANIC DISORDER
  8. GLYBURIDE [Concomitant]
     Indication: DIABETES MELLITUS
     Dosage: 5 MG, 3X/DAY
     Dates: start: 20090101
  9. ALPRAZOLAM [Suspect]
     Indication: DEPRESSION
  10. EPOCLER (WHITEHALL-BRAZIL) [Concomitant]
     Indication: LIVER DISORDER
     Dosage: UNK, AS NEEDED
  11. ALPRAZOLAM [Suspect]
     Indication: ANXIETY
  12. LASIX [Concomitant]
     Indication: FLUID RETENTION

REACTIONS (16)
  - DYSPNOEA [None]
  - COGNITIVE DISORDER [None]
  - DISTURBANCE IN ATTENTION [None]
  - IRRITABILITY [None]
  - GRIEF REACTION [None]
  - BALANCE DISORDER [None]
  - CONFUSIONAL STATE [None]
  - LIVER DISORDER [None]
  - DYSGEUSIA [None]
  - DECREASED APPETITE [None]
  - VISION BLURRED [None]
  - SOMNOLENCE [None]
  - FATIGUE [None]
  - DEPRESSION [None]
  - SPEECH DISORDER [None]
  - SLEEP DISORDER [None]
